FAERS Safety Report 9998084 (Version 1)
Quarter: 2014Q1

REPORT INFORMATION
  Report Type: Spontaneous
  Country: US (occurrence: None)
  Receive Date: 20140218
  Receipt Date: 20140218
  Transmission Date: 20141002
  Serious: Yes (Other)
  Sender: FDA-Public Use
  Company Number: 1000052114

PATIENT
  Age: 48 Year
  Sex: Female

DRUGS (1)
  1. VIIBRYD [Suspect]
     Indication: DEPRESSION
     Dosage: 10 MG (10 MG, 1 IN 1 D), ORAL
     Route: 048
     Dates: start: 20131202, end: 20131208

REACTIONS (5)
  - Hypoaesthesia [None]
  - Anxiety [None]
  - Middle insomnia [None]
  - Initial insomnia [None]
  - Libido increased [None]
